FAERS Safety Report 9956053 (Version 1)
Quarter: 2014Q1

REPORT INFORMATION
  Report Type: Report from Study
  Country: US (occurrence: US)
  Receive Date: 20140304
  Receipt Date: 20140304
  Transmission Date: 20141002
  Serious: No
  Sender: FDA-Public Use
  Company Number: US-ABBVIE-13P-163-1090403-00

PATIENT
  Age: 40 Year
  Sex: Female

DRUGS (8)
  1. HUMIRA [Suspect]
     Indication: PSORIATIC ARTHROPATHY
     Dates: start: 20130307
  2. NEURONTIN [Concomitant]
     Indication: FIBROMYALGIA
  3. NAPROXEN [Concomitant]
     Indication: PRODUCT USED FOR UNKNOWN INDICATION
  4. PAXIL [Concomitant]
     Indication: DEPRESSION
     Dosage: AT BEDTIME
  5. PAXIL [Concomitant]
     Indication: FIBROMYALGIA
  6. VITAMIN B3 [Concomitant]
     Indication: PRODUCT USED FOR UNKNOWN INDICATION
     Dosage: 50 MG DAILY
  7. TRAMADOL [Concomitant]
     Indication: PAIN
     Dosage: UP TO THREE PER DAY
  8. FLEXERIL [Concomitant]
     Indication: PAIN
     Dosage: UP TO 3 PER DAY

REACTIONS (2)
  - Hypertension [Not Recovered/Not Resolved]
  - Chest pain [Not Recovered/Not Resolved]
